FAERS Safety Report 12136565 (Version 10)
Quarter: 2016Q2

REPORT INFORMATION
  Report Type: Spontaneous
  Country: US (occurrence: US)
  Receive Date: 20160302
  Receipt Date: 20160627
  Transmission Date: 20160815
  Serious: Yes (Other)
  Sender: FDA-Public Use
  Company Number: US-PFIZER INC-2016075780

PATIENT
  Age: 69 Year
  Sex: Male
  Weight: 80 kg

DRUGS (18)
  1. VITAMIN B12 [Concomitant]
     Active Substance: CYANOCOBALAMIN
     Dosage: UNK
  2. MELATONIN [Concomitant]
     Active Substance: MELATONIN
     Dosage: UNK
  3. SANDOSTATIN [Concomitant]
     Active Substance: OCTREOTIDE ACETATE
  4. SUTENT [Suspect]
     Active Substance: SUNITINIB MALATE
     Dosage: UNK
  5. COREG [Concomitant]
     Active Substance: CARVEDILOL
     Dosage: 25 MG, 2X/DAY
  6. SUTENT [Suspect]
     Active Substance: SUNITINIB MALATE
     Dosage: 25 MG, DAILY
     Route: 048
     Dates: start: 20160308
  7. LISINOPRIL. [Concomitant]
     Active Substance: LISINOPRIL
     Indication: HYPERTENSION
  8. METAMUCIL [Concomitant]
     Active Substance: PLANTAGO SEED
     Dosage: UNK
  9. OCTREOTIDE. [Concomitant]
     Active Substance: OCTREOTIDE
     Indication: PROPHYLAXIS
  10. ACETYLSALICYLIC ACID, CAFFEINE, PARACETAMOL [Concomitant]
     Indication: MIGRAINE
     Dosage: 2 DF, 4X/DAY (IT HAS 250MG ACETAMINOPHEN, 250MG ASPIRIN, AND 65MG CAFFEINE)
  11. SUTENT [Suspect]
     Active Substance: SUNITINIB MALATE
     Indication: PANCREATIC NEUROENDOCRINE TUMOUR
     Dosage: 37.5 MG, DAILY
     Route: 048
     Dates: start: 20160120, end: 20160127
  12. CARVEDILOL. [Concomitant]
     Active Substance: CARVEDILOL
     Dosage: 100 MG, DAILY
  13. CARVEDILOL. [Concomitant]
     Active Substance: CARVEDILOL
     Dosage: UNK
  14. SUTENT [Suspect]
     Active Substance: SUNITINIB MALATE
     Dosage: 37.5 MG, DAILY (ONCE WITH EVENING MEAL)
     Route: 048
     Dates: end: 20160217
  15. LISINOPRIL. [Concomitant]
     Active Substance: LISINOPRIL
     Indication: BLOOD PRESSURE ABNORMAL
     Dosage: 40 MG, 1X/DAY (ONCE IN THE MORNING)
     Dates: start: 2010
  16. LIDEX [Concomitant]
     Active Substance: FLUOCINONIDE
     Dosage: UNK
  17. OCTREOTIDE. [Concomitant]
     Active Substance: OCTREOTIDE
     Indication: NEOPLASM MALIGNANT
     Dosage: 40 MG, UNK (EVERY 28 DAYS)
     Dates: start: 201401
  18. CARVEDILOL. [Concomitant]
     Active Substance: CARVEDILOL
     Indication: CARDIAC DISORDER
     Dosage: 50 MG, 2X/DAY

REACTIONS (22)
  - Fatigue [Recovered/Resolved]
  - Dysgeusia [Recovering/Resolving]
  - Hypoaesthesia oral [Unknown]
  - Pruritus [Not Recovered/Not Resolved]
  - Hypertension [Unknown]
  - Vomiting [Unknown]
  - Palmar-plantar erythrodysaesthesia syndrome [Unknown]
  - Red blood cell count decreased [Recovered/Resolved]
  - Influenza [Unknown]
  - Diarrhoea [Unknown]
  - Abdominal pain [Unknown]
  - Thrombocytopenia [Recovered/Resolved]
  - Disease progression [Unknown]
  - Pancreatic neuroendocrine tumour [Unknown]
  - Cyst [Unknown]
  - Blood glucose increased [Unknown]
  - Full blood count decreased [Not Recovered/Not Resolved]
  - Dry mouth [Not Recovered/Not Resolved]
  - Neutropenia [Recovered/Resolved]
  - White blood cell count decreased [Recovered/Resolved]
  - Drug dose omission [Unknown]
  - Retching [Unknown]

NARRATIVE: CASE EVENT DATE: 2016
